FAERS Safety Report 6171012-5 (Version None)
Quarter: 2009Q2

REPORT INFORMATION
  Report Type: 
  Country: None (occurrence: None)
  Receive Date: 20090428
  Receipt Date: 20090428
  Transmission Date: 20091009
  Serious: Yes (Other)
  Sender: FDA-Public Use
  Company Number: None

PATIENT
  Sex: Male
  Weight: 86.1834 kg

DRUGS (1)
  1. ZYPREXA [Suspect]
     Indication: BIPOLAR DISORDER
     Dosage: 7.5MG 1 DOSE AT BEDTIME PO
     Route: 048
     Dates: start: 20090419, end: 20090425

REACTIONS (4)
  - HYPERSOMNIA [None]
  - PRODUCT QUALITY ISSUE [None]
  - SEDATION [None]
  - WEIGHT INCREASED [None]
